FAERS Safety Report 8447946 (Version 2)
Quarter: 2013Q2

REPORT INFORMATION
  Report Type: Spontaneous
  Country: GB (occurrence: GB)
  Receive Date: 20120308
  Receipt Date: 20130618
  Transmission Date: 20140414
  Serious: Yes (Life-Threatening)
  Sender: FDA-Public Use
  Company Number: GB-EISAI INC-E2090-02019-SPO-GB

PATIENT
  Age: 62 Year
  Sex: Male
  Weight: 93 kg

DRUGS (6)
  1. ZONEGRAN [Suspect]
     Indication: CLUSTER HEADACHE
     Route: 048
     Dates: start: 20120111, end: 20120121
  2. LISKONUM [Concomitant]
     Indication: CLUSTER HEADACHE
     Dosage: 1350 MG DAILY
     Route: 048
     Dates: start: 2001
  3. OMEPRAZOLE [Concomitant]
     Indication: DUODENAL ULCER
     Dosage: 40 MG DAILY
     Route: 048
  4. SIMVASTATIN [Concomitant]
     Dosage: 20 MG DAILY
     Route: 048
  5. SALBUTAMOL [Concomitant]
  6. TIOTROPIUM BROMIDE [Concomitant]

REACTIONS (2)
  - Pneumonia [Unknown]
  - Neutropenia [Recovered/Resolved]
